FAERS Safety Report 4781937-0 (Version None)
Quarter: 2005Q3

REPORT INFORMATION
  Report Type: 
  Country: None (occurrence: None)
  Receive Date: 20050928
  Receipt Date: 20050914
  Transmission Date: 20060218
  Serious: Yes (Other)
  Sender: FDA-Public Use
  Company Number: TW-MERCK-0509TWN00011

PATIENT
  Age: 6 Year
  Sex: Female
  Weight: 20 kg

DRUGS (4)
  1. SINGULAIR [Suspect]
     Indication: ASTHMA
     Route: 048
     Dates: start: 20050907, end: 20050912
  2. PREDNISOLONE [Concomitant]
     Route: 048
     Dates: start: 20050904, end: 20050907
  3. ALBUTEROL SULFATE [Concomitant]
     Route: 048
     Dates: start: 20050904, end: 20050911
  4. MEQUITAZINE [Concomitant]
     Route: 048
     Dates: start: 20050904, end: 20050911

REACTIONS (2)
  - HYPERMETROPIA [None]
  - MYDRIASIS [None]
